FAERS Safety Report 9484062 (Version 2)
Quarter: 2013Q3

REPORT INFORMATION
  Report Type: Spontaneous
  Country: CA (occurrence: CA)
  Receive Date: 20130828
  Receipt Date: 20130828
  Transmission Date: 20140515
  Serious: Yes (Death, Hospitalization)
  Sender: FDA-Public Use
  Company Number: CA-AMGEN-KDL262846

PATIENT
  Age: 69 Year
  Sex: Female
  Weight: 54.5 kg

DRUGS (8)
  1. ENBREL [Suspect]
     Indication: RHEUMATOID ARTHRITIS
     Dosage: UNK UNK, QWK
     Route: 065
     Dates: start: 20071102, end: 20090305
  2. PREDNISONE [Concomitant]
     Dosage: UNK UNK, UNK
     Route: 048
  3. ENALAPRIL MALEATE [Concomitant]
     Dosage: UNK UNK, BID
  4. HYDROCHLOROTHIAZIDE [Concomitant]
     Dosage: 25 MG, QD
     Route: 048
  5. ACEBUTOLOL [Concomitant]
     Dosage: 200 MG, BID
     Route: 048
  6. OMEPRAZOLE [Concomitant]
     Dosage: 20 MG, QD
     Route: 048
  7. AMLODIPINE BESILATE [Concomitant]
     Dosage: 5 MG, QD
     Route: 048
  8. AMITRIPTYLINE HYDROCHLORIDE [Concomitant]
     Dosage: 10 MG, QD

REACTIONS (6)
  - Cardiac disorder [Unknown]
  - Death [Fatal]
  - Pneumonia [Unknown]
  - Cystitis [Unknown]
  - Alopecia [Unknown]
  - Arthralgia [Recovering/Resolving]
